FAERS Safety Report 25344828 (Version 1)
Quarter: 2025Q2

REPORT INFORMATION
  Report Type: Report from Study
  Country: US (occurrence: US)
  Receive Date: 20250522
  Receipt Date: 20250522
  Transmission Date: 20250717
  Serious: Yes (Other)
  Sender: ACADIA PHARMACEUTICALS
  Company Number: US-ACADIA PHARMACEUTICALS INC.-ACA-2025-PIM-006031

PATIENT
  Age: 66 Year
  Sex: Female

DRUGS (12)
  1. NUPLAZID [Suspect]
     Active Substance: PIMAVANSERIN TARTRATE
     Indication: Parkinson^s disease psychosis
     Dosage: 34 MILLIGRAM, QD
     Route: 048
     Dates: start: 20250516
  2. SINEMET [Concomitant]
     Active Substance: CARBIDOPA\LEVODOPA
  3. DIAZEPAM [Concomitant]
     Active Substance: DIAZEPAM
  4. LOVASTATIN [Concomitant]
     Active Substance: LOVASTATIN
  5. RASAGILINE [Concomitant]
     Active Substance: RASAGILINE
  6. CITALOPRAM [Concomitant]
     Active Substance: CITALOPRAM
  7. LORATADINE [Concomitant]
     Active Substance: LORATADINE
  8. CARVEDILOL [Concomitant]
     Active Substance: CARVEDILOL
  9. DONEPEZIL [Concomitant]
     Active Substance: DONEPEZIL
  10. NEUPRO [Concomitant]
     Active Substance: ROTIGOTINE
  11. MELATONIN [Concomitant]
     Active Substance: MELATONIN
  12. INBRIJA [Concomitant]
     Active Substance: LEVODOPA

REACTIONS (6)
  - Paralysis [Not Recovered/Not Resolved]
  - Feeling abnormal [Unknown]
  - Musculoskeletal stiffness [Not Recovered/Not Resolved]
  - Motor dysfunction [Not Recovered/Not Resolved]
  - Movement disorder [Not Recovered/Not Resolved]
  - Confusional state [Not Recovered/Not Resolved]

NARRATIVE: CASE EVENT DATE: 20250516
